FAERS Safety Report 13087212 (Version 3)
Quarter: 2017Q1

REPORT INFORMATION
  Report Type: Report from Study
  Country: GB (occurrence: GB)
  Receive Date: 20170105
  Receipt Date: 20170209
  Transmission Date: 20170428
  Serious: Yes (Hospitalization)
  Sender: FDA-Public Use
  Company Number: GB-ACCORD-047066

PATIENT
  Age: 78 Year
  Sex: Male

DRUGS (12)
  1. HERCEPTIN [Suspect]
     Active Substance: TRASTUZUMAB
     Indication: HER-2 POSITIVE GASTRIC CANCER
     Dosage: LAST ADMINISTERATION DATE BEFORE SAE 16-DEC-2016, TREATMENT DURATION 1 DAY
     Route: 042
     Dates: start: 20161216
  2. CISPLATIN. [Suspect]
     Active Substance: CISPLATIN
     Indication: HER-2 POSITIVE GASTRIC CANCER
     Dosage: LAST ADMINISTERATION DATE BEFORE SAE 16-DEC-2016, TREATMENT DURATION 1 DAY
     Route: 042
     Dates: start: 20161216
  3. ACETYLSALICYLIC ACID [Concomitant]
     Active Substance: ASPIRIN
     Route: 048
  4. OMEPRAZOLE. [Concomitant]
     Active Substance: OMEPRAZOLE
     Route: 048
  5. PERTUZUMAB [Suspect]
     Active Substance: PERTUZUMAB
     Indication: HER-2 POSITIVE GASTRIC CANCER
     Dosage: LAST ADMINISTERATION DATE BEFORE SAE 16-DEC-2016, TREATMENT DURATION 1 DAY
     Route: 042
     Dates: start: 20161216
  6. FLUOROURACIL. [Suspect]
     Active Substance: FLUOROURACIL
     Indication: HER-2 POSITIVE GASTRIC CANCER
     Dosage: LAST ADMINISTERATION DATE: 16-DEC-2016,  TREATMENT DURATION 1 DAY
     Route: 042
     Dates: start: 20161216
  7. CLARITHROMYCIN/CLARITHROMYCIN LACTOBIONATE [Concomitant]
     Route: 048
  8. CLOPIDOGREL [Concomitant]
     Active Substance: CLOPIDOGREL BISULFATE
     Route: 048
  9. XELODA [Suspect]
     Active Substance: CAPECITABINE
     Indication: HER-2 POSITIVE GASTRIC CANCER
     Dosage: LAST ADMINISTERATION DATE BEFORE SAE 16-DEC-2016, TREATMENT DURATION 1 DAY
     Route: 048
     Dates: start: 20161216
  10. DILTIAZEM. [Concomitant]
     Active Substance: DILTIAZEM
     Route: 048
  11. ISOSORBIDE. [Concomitant]
     Active Substance: ISOSORBIDE
     Route: 048
  12. RAMIPRIL. [Concomitant]
     Active Substance: RAMIPRIL
     Route: 048

REACTIONS (3)
  - Troponin increased [Unknown]
  - Arteriospasm coronary [Recovered/Resolved with Sequelae]
  - Off label use [Unknown]

NARRATIVE: CASE EVENT DATE: 20161220
